FAERS Safety Report 23973042 (Version 1)
Quarter: 2024Q2

REPORT INFORMATION
  Report Type: Spontaneous
  Country: US (occurrence: None)
  Receive Date: 20240613
  Receipt Date: 20240613
  Transmission Date: 20240716
  Serious: No
  Sender: FDA-Public Use
  Company Number: US-MDD US Operations-MDD202307-002997

PATIENT
  Age: 67 Year
  Sex: Female

DRUGS (1)
  1. APOKYN [Suspect]
     Active Substance: APOMORPHINE HYDROCHLORIDE
     Indication: Product used for unknown indication
     Dates: start: 20230720

REACTIONS (4)
  - Dizziness [Recovered/Resolved]
  - Nausea [Recovered/Resolved]
  - Hyperhidrosis [Recovered/Resolved]
  - Headache [Unknown]

NARRATIVE: CASE EVENT DATE: 20230720
